FAERS Safety Report 5734579-4 (Version None)
Quarter: 2008Q2

REPORT INFORMATION
  Report Type: 
  Country: None (occurrence: None)
  Receive Date: 20080512
  Receipt Date: 20080502
  Transmission Date: 20081010
  Serious: Yes (Death)
  Sender: FDA-Public Use
  Company Number: US-BAYER-200811712BCC

PATIENT
  Age: 78 Year
  Sex: Male
  Weight: 125 kg

DRUGS (18)
  1. ASPIRIN [Suspect]
     Indication: PROPHYLAXIS
     Dosage: TOTAL DAILY DOSE: 325 MG  UNIT DOSE: 325 MG
     Dates: start: 20070601, end: 20080101
  2. ONE A DAY MEN'S HEALTH FORMULA [Suspect]
     Indication: VITAMIN SUPPLEMENTATION
     Dosage: TOTAL DAILY DOSE: 1 DF
     Route: 048
     Dates: start: 20040101, end: 20040101
  3. ONE A DAY MEN'S HEALTH FORMULA [Suspect]
     Dosage: TOTAL DAILY DOSE: 1 DF
     Route: 048
     Dates: start: 20070101, end: 20080101
  4. PLAVIX [Suspect]
     Indication: DRUG USE FOR UNKNOWN INDICATION
     Dates: start: 20071201
  5. PRILOSEC [Concomitant]
  6. BUMEX [Concomitant]
  7. KETOCONAZOLE [Concomitant]
  8. ISOSORBIDE DINITRATE [Concomitant]
  9. STARLIX [Concomitant]
  10. GARLIC [Concomitant]
  11. VITAMIN E [Concomitant]
  12. VITAMIN B6 [Concomitant]
  13. VITAMIN D [Concomitant]
  14. COQ10 [Concomitant]
  15. FLAXSEED [Concomitant]
  16. SELENIUM [Concomitant]
  17. PROSTATE HEALTH [Concomitant]
     Route: 048
  18. CINNAMON [Concomitant]

REACTIONS (1)
  - CEREBROVASCULAR ACCIDENT [None]
